FAERS Safety Report 6681854-5 (Version None)
Quarter: 2010Q2

REPORT INFORMATION
  Report Type: 
  Country: None (occurrence: None)
  Receive Date: 20100414
  Receipt Date: 20100407
  Transmission Date: 20101027
  Serious: Yes (Hospitalization)
  Sender: FDA-Public Use
  Company Number: GB-ROCHE-695678

PATIENT
  Sex: Female
  Weight: 61.7 kg

DRUGS (5)
  1. CAPECITABINE [Suspect]
     Indication: BREAST CANCER
     Dosage: LAST DOSE PRIOR TO SAE:  22 MARCH 2010.
     Route: 048
     Dates: start: 20091130
  2. DOCETAXEL [Suspect]
     Indication: BREAST CANCER
     Route: 042
  3. ASPIRIN [Concomitant]
     Indication: HYPERTENSION
     Route: 048
     Dates: start: 20020210
  4. ESOMEPRAZOLE [Concomitant]
     Route: 048
     Dates: end: 20100406
  5. LERCANIDIPINE [Concomitant]
     Indication: HYPERTENSION
     Route: 048

REACTIONS (2)
  - FEBRILE NEUTROPENIA [None]
  - TRAUMATIC HAEMATOMA [None]
